FAERS Safety Report 8032850-7 (Version None)
Quarter: 2012Q1

REPORT INFORMATION
  Report Type: 
  Country: None (occurrence: None)
  Receive Date: 20120110
  Receipt Date: 20111230
  Transmission Date: 20120608
  Serious: Yes (Hospitalization)
  Sender: FDA-Public Use
  Company Number: FR-SANOFI-AVENTIS-2011SA085707

PATIENT
  Age: 77 Year
  Sex: Male

DRUGS (10)
  1. ALDACTONE [Suspect]
     Route: 048
     Dates: start: 20080401
  2. PROPRANOLOL [Concomitant]
     Dates: start: 20080401
  3. NEXIUM [Concomitant]
     Dates: start: 20080401
  4. VITAMIN B COMPLEX TAB [Concomitant]
     Dates: start: 20080401
  5. FUROSEMIDE [Suspect]
     Route: 048
     Dates: start: 20080401
  6. INSULATARD NPH HUMAN [Concomitant]
     Dates: start: 20080401
  7. DESLORATADINE [Concomitant]
     Dates: start: 20080401
  8. DURAGESIC-100 [Suspect]
     Indication: PAIN
     Dosage: 1 UNIT EVERY 72 HOURS
     Route: 003
     Dates: start: 20110601
  9. ADANCOR [Concomitant]
     Dates: start: 20080401
  10. NOVORAPID [Concomitant]
     Dates: start: 20080401

REACTIONS (2)
  - ORTHOSTATIC HYPOTENSION [None]
  - SOMNOLENCE [None]
